FAERS Safety Report 4867089-7 (Version None)
Quarter: 2005Q4

REPORT INFORMATION
  Report Type: 
  Country: None (occurrence: None)
  Receive Date: 20051222
  Receipt Date: 20051213
  Transmission Date: 20060501
  Serious: Yes (Hospitalization)
  Sender: FDA-Public Use
  Company Number: 2005-12-0591

PATIENT
  Sex: Male

DRUGS (2)
  1. TEMODAR [Suspect]
     Indication: BRAIN NEOPLASM
     Dosage: ORAL/1 CYCLE(S)
     Route: 048
  2. ZYPREXA [Suspect]

REACTIONS (3)
  - AGITATION [None]
  - ASTHENIA [None]
  - DYSPHAGIA [None]
